FAERS Safety Report 7030456-X (Version None)
Quarter: 2010Q4

REPORT INFORMATION
  Report Type: 
  Country: None (occurrence: None)
  Receive Date: 20101006
  Receipt Date: 20100927
  Transmission Date: 20110411
  Serious: Yes (Other)
  Sender: FDA-Public Use
  Company Number: TW-ASTRAZENECA-2010SE45554

PATIENT

DRUGS (2)
  1. CRESTOR [Suspect]
     Route: 048
  2. LIPITOR [Concomitant]

REACTIONS (1)
  - SKIN EXFOLIATION [None]
